FAERS Safety Report 9098272 (Version 2)
Quarter: 2013Q1

REPORT INFORMATION
  Report Type: Spontaneous
  Country: US (occurrence: US)
  Receive Date: 20130213
  Receipt Date: 20130307
  Transmission Date: 20140127
  Serious: Yes (Death, Hospitalization, Other)
  Sender: FDA-Public Use
  Company Number: US-CELGENEUS-163-50794-13021516

PATIENT
  Age: 65 Year
  Sex: Male
  Weight: 70.82 kg

DRUGS (5)
  1. VIDAZA [Suspect]
     Indication: MYELOFIBROSIS
     Dosage: 75 MILLIGRAM/SQ. METER
     Route: 041
     Dates: start: 20121031, end: 20121101
  2. VIDAZA [Suspect]
     Dosage: 75 MILLIGRAM/SQ. METER
     Route: 041
     Dates: start: 20121119, end: 20121124
  3. JAKAFI [Suspect]
     Indication: MYELOFIBROSIS
     Dosage: 5 MILLIGRAM
     Route: 048
     Dates: start: 20120917, end: 20120918
  4. JAKAFI [Suspect]
     Dosage: 10 MILLIGRAM
     Route: 048
     Dates: start: 20120919, end: 20121003
  5. VITAMIN B3 [Concomitant]
     Indication: PRODUCT USED FOR UNKNOWN INDICATION
     Route: 065

REACTIONS (6)
  - Myelofibrosis [Fatal]
  - Fluid overload [Recovering/Resolving]
  - Pyrexia [Recovered/Resolved]
  - Influenza [Recovered/Resolved]
  - Pneumonia [Recovered/Resolved]
  - Haemoglobin decreased [Recovered/Resolved]
